FAERS Safety Report 14246627 (Version 2)
Quarter: 2019Q2

REPORT INFORMATION
  Report Type: Spontaneous
  Country: FR (occurrence: FR)
  Receive Date: 20171204
  Receipt Date: 20190430
  Transmission Date: 20190711
  Serious: Yes (Hospitalization)
  Sender: FDA-Public Use
  Company Number: FR-AUROBINDO-AUR-APL-2017-43970

PATIENT

DRUGS (8)
  1. VENLAFAXINE [Suspect]
     Active Substance: VENLAFAXINE HYDROCHLORIDE
     Indication: DEPRESSION
     Dosage: 225 MILLIGRAM, TWO TIMES A DAY (QOD)
     Route: 048
     Dates: start: 20170815
  2. RILPIVIRINE [Concomitant]
     Active Substance: RILPIVIRINE
     Dosage: 25 MILLIGRAM
     Route: 065
  3. CABOTEGRAVIR [Interacting]
     Active Substance: CABOTEGRAVIR
     Indication: HIV INFECTION
     Dosage: 2 MILLILITER, CYC
     Route: 030
     Dates: start: 20170928
  4. CABOTEGRAVIR [Interacting]
     Active Substance: CABOTEGRAVIR
     Dosage: 400 MILLIGRAM
     Route: 030
     Dates: start: 20170928
  5. RILPIVIRINE [Concomitant]
     Active Substance: RILPIVIRINE
     Indication: PRODUCT USED FOR UNKNOWN INDICATION
     Dosage: 600 MILLIGRAM
     Route: 065
  6. CABOTEGRAVIR [Interacting]
     Active Substance: CABOTEGRAVIR
     Dosage: 30 MILLIGRAM
     Route: 048
     Dates: start: 201709
  7. RILPIVIRINE [Concomitant]
     Active Substance: RILPIVIRINE
     Dosage: 600 MILLIGRAM
     Route: 065
     Dates: start: 20170928
  8. PAROXETINE. [Concomitant]
     Active Substance: PAROXETINE
     Indication: PRODUCT USED FOR UNKNOWN INDICATION
     Dosage: UNK
     Route: 065

REACTIONS (5)
  - Depressed mood [Recovered/Resolved]
  - Medication error [Unknown]
  - Anxiety [Recovered/Resolved]
  - Depression [Recovered/Resolved]
  - Drug interaction [Unknown]

NARRATIVE: CASE EVENT DATE: 20170928
